FAERS Safety Report 17272810 (Version 1)
Quarter: 2020Q1

REPORT INFORMATION
  Report Type: Spontaneous
  Country: US (occurrence: US)
  Receive Date: 20191223
  Receipt Date: 20191223
  Transmission Date: 20200409
  Serious: Yes (Hospitalization)
  Sender: FDA-Public Use
  Company Number: None

PATIENT
  Age: 72 Year
  Sex: Female
  Weight: 45.5 kg

DRUGS (15)
  1. DAPTOMYCIN. [Concomitant]
     Active Substance: DAPTOMYCIN
  2. MICAFUNGIN. [Concomitant]
     Active Substance: MICAFUNGIN SODIUM
  3. DIPHRNOXYLATE [Concomitant]
  4. ATROPINE. [Concomitant]
     Active Substance: ATROPINE
  5. ZOFRAN [Concomitant]
     Active Substance: ONDANSETRON HYDROCHLORIDE
  6. MEQ [Concomitant]
  7. PROAIR HFA [Concomitant]
     Active Substance: ALBUTEROL SULFATE
  8. TYLENOL WITH CODEINE [Concomitant]
     Active Substance: ACETAMINOPHEN\CODEINE PHOSPHATE
  9. OPIUM TINCURE [Concomitant]
  10. VITAMIN D2 [Concomitant]
     Active Substance: ERGOCALCIFEROL
  11. ENOXAPARIN [Concomitant]
     Active Substance: ENOXAPARIN
  12. ERTAPENEM 1 GRAM [Suspect]
     Active Substance: ERTAPENEM
     Indication: PELVIC ABSCESS
     Dosage: ?          OTHER FREQUENCY:EVERY 24 HOURS;?
     Route: 042
     Dates: end: 20191216
  13. COLESEVELAM [Concomitant]
     Active Substance: COLESEVELAM
  14. MAGNESIUM GLUCONATE [Concomitant]
     Active Substance: MAGNESIUM GLUCONATE
  15. POTASSIUM CHLORIDE. [Concomitant]
     Active Substance: POTASSIUM CHLORIDE

REACTIONS (1)
  - Seizure [None]

NARRATIVE: CASE EVENT DATE: 20191216
